FAERS Safety Report 11081079 (Version 3)
Quarter: 2015Q2

REPORT INFORMATION
  Report Type: Spontaneous
  Country: JP (occurrence: JP)
  Receive Date: 20150501
  Receipt Date: 20150611
  Transmission Date: 20150821
  Serious: Yes (Death, Life-Threatening)
  Sender: FDA-Public Use
  Company Number: JP-PFIZER INC-2015144472

PATIENT
  Age: 72 Year
  Sex: Male

DRUGS (6)
  1. METGLUCO [Concomitant]
     Active Substance: METFORMIN HYDROCHLORIDE
     Dosage: UNK
     Dates: start: 20110628, end: 20141211
  2. OLMETEC [Concomitant]
     Active Substance: OLMESARTAN MEDOXOMIL
     Dosage: UNK
     Dates: start: 20141016, end: 20141211
  3. TRESIBA [Concomitant]
     Active Substance: INSULIN DEGLUDEC
     Dosage: 8 IU, DAILY
     Route: 058
  4. SEIBULE [Suspect]
     Active Substance: MIGLITOL
     Indication: DIABETES MELLITUS
     Dosage: 150 MG, DAILY
     Route: 048
     Dates: start: 20110419, end: 20141211
  5. URIADEC [Concomitant]
     Indication: HYPERURICAEMIA
     Dosage: 40 MG, DAILY
     Route: 048
     Dates: start: 20141017, end: 20141211
  6. GLIMICRON [Concomitant]
     Active Substance: GLICLAZIDE
     Dosage: UNK
     Dates: start: 20080616, end: 20141211

REACTIONS (1)
  - Pancreatic carcinoma [Fatal]

NARRATIVE: CASE EVENT DATE: 20141205
